FAERS Safety Report 4873458-1 (Version None)
Quarter: 2006Q1

REPORT INFORMATION
  Report Type: 
  Country: None (occurrence: None)
  Receive Date: 20060105
  Receipt Date: 20051222
  Transmission Date: 20060701
  Serious: Yes (Other)
  Sender: FDA-Public Use
  Company Number: NO-JNJFOC-20051100659

PATIENT
  Sex: Male

DRUGS (4)
  1. HALDOL [Suspect]
     Dosage: 0.5MG IN THE MORNING, 2MG IN THE EVENING
     Route: 048
  2. ZYPREXA [Suspect]
     Route: 048
  3. PARACET [Concomitant]
  4. CLOXACILLIN SODIUM [Concomitant]

REACTIONS (3)
  - EPILEPSY [None]
  - GENERAL PHYSICAL HEALTH DETERIORATION [None]
  - WOUND INFECTION [None]
